FAERS Safety Report 13109789 (Version 1)
Quarter: 2017Q1

REPORT INFORMATION
  Report Type: Spontaneous
  Country: US (occurrence: US)
  Receive Date: 20170112
  Receipt Date: 20170112
  Transmission Date: 20170428
  Serious: Yes (Other)
  Sender: FDA-Public Use
  Company Number: US-ROCHE-1100726

PATIENT
  Age: 49 Year
  Sex: Male

DRUGS (9)
  1. ACTIVASE [Suspect]
     Active Substance: ALTEPLASE
     Indication: ACUTE MYOCARDIAL INFARCTION
     Route: 040
     Dates: start: 19890516
  2. ACTIVASE [Suspect]
     Active Substance: ALTEPLASE
     Route: 065
  3. ACTIVASE [Suspect]
     Active Substance: ALTEPLASE
     Route: 065
  4. NTG [Concomitant]
     Active Substance: NITROGLYCERIN
     Route: 060
  5. MS [Concomitant]
     Active Substance: MORPHINE SULFATE
     Route: 042
  6. NTG [Concomitant]
     Active Substance: NITROGLYCERIN
     Route: 060
  7. MS [Concomitant]
     Active Substance: MORPHINE SULFATE
     Route: 042
  8. KCL [Concomitant]
     Active Substance: POTASSIUM CHLORIDE
     Route: 048
  9. NTG [Concomitant]
     Active Substance: NITROGLYCERIN
     Route: 060

REACTIONS (2)
  - Hypotension [Unknown]
  - Nausea [Unknown]
